FAERS Safety Report 19177511 (Version 1)
Quarter: 2021Q2

REPORT INFORMATION
  Report Type: Spontaneous
  Country: US (occurrence: US)
  Receive Date: 20210425
  Receipt Date: 20210425
  Transmission Date: 20210717
  Serious: No
  Sender: FDA-Public Use
  Company Number: US-SA-2021SA133170

PATIENT
  Age: 56 Year
  Sex: Female

DRUGS (1)
  1. AUBAGIO [Suspect]
     Active Substance: TERIFLUNOMIDE
     Indication: MULTIPLE SCLEROSIS
     Dosage: 14 MG, QD
     Route: 048
     Dates: start: 20190313

REACTIONS (5)
  - Peroneal nerve palsy [Unknown]
  - Fall [Unknown]
  - Gait disturbance [Unknown]
  - Mobility decreased [Not Recovered/Not Resolved]
  - Sciatica [Not Recovered/Not Resolved]

NARRATIVE: CASE EVENT DATE: 202010
